FAERS Safety Report 6756624-X (Version None)
Quarter: 2010Q2

REPORT INFORMATION
  Report Type: 
  Country: None (occurrence: None)
  Receive Date: 20100604
  Receipt Date: 20100528
  Transmission Date: 20101027
  Serious: Yes (Other)
  Sender: FDA-Public Use
  Company Number: US-MERCK-1006USA00026

PATIENT
  Age: 73 Year
  Sex: Female

DRUGS (5)
  1. ZETIA [Suspect]
     Route: 048
  2. ASPIRIN [Concomitant]
     Route: 065
  3. LYSINE [Concomitant]
     Route: 065
  4. PRAVASTATIN SODIUM [Concomitant]
     Route: 065
  5. TIMOPTIC IN OCUDOSE [Concomitant]
     Route: 047

REACTIONS (4)
  - BLINDNESS [None]
  - BLINDNESS UNILATERAL [None]
  - DERMATITIS [None]
  - GLAUCOMA [None]
